FAERS Safety Report 5953851-6 (Version None)
Quarter: 2008Q4

REPORT INFORMATION
  Report Type: 
  Country: None (occurrence: None)
  Receive Date: 20081114
  Receipt Date: 20081103
  Transmission Date: 20090506
  Serious: Yes (Hospitalization, Other)
  Sender: FDA-Public Use
  Company Number: US-PFIZER INC-2007071574

PATIENT
  Sex: Female
  Weight: 45.909 kg

DRUGS (9)
  1. CHANTIX [Suspect]
     Indication: SMOKING CESSATION THERAPY
     Route: 048
     Dates: start: 20070601, end: 20070823
  2. ELAVIL [Suspect]
     Indication: SLEEP DISORDER
  3. ELAVIL [Suspect]
     Indication: MIGRAINE
  4. XANAX [Concomitant]
  5. VALIUM [Concomitant]
  6. VERAPAMIL [Concomitant]
  7. LANTUS [Concomitant]
  8. HUMALOG [Concomitant]
  9. GLUCOPHAGE [Concomitant]

REACTIONS (7)
  - BLINDNESS UNILATERAL [None]
  - GLAUCOMA [None]
  - INTRAOCULAR PRESSURE INCREASED [None]
  - MEDICATION ERROR [None]
  - PNEUMONIA [None]
  - PUPILLARY DISORDER [None]
  - SLEEP DISORDER [None]
